FAERS Safety Report 8214860-X (Version None)
Quarter: 2012Q1

REPORT INFORMATION
  Report Type: 
  Country: None (occurrence: None)
  Receive Date: 20120229
  Receipt Date: 20110726
  Transmission Date: 20120608
  Serious: Yes (Other)
  Sender: FDA-Public Use
  Company Number: PHHY2011US67770

PATIENT
  Age: 72 Year
  Sex: Male

DRUGS (1)
  1. NEORAL [Suspect]
     Indication: LUNG TRANSPLANT
     Dosage: 375 MG, BID , ORAL
     Route: 048
     Dates: start: 20110101, end: 20110701

REACTIONS (2)
  - LUNG TRANSPLANT REJECTION [None]
  - COUGH [None]
